FAERS Safety Report 5353612-5 (Version None)
Quarter: 2007Q2

REPORT INFORMATION
  Report Type: 
  Country: None (occurrence: None)
  Receive Date: 20070612
  Receipt Date: 20070606
  Transmission Date: 20071010
  Serious: Yes (Hospitalization)
  Sender: FDA-Public Use
  Company Number: US-ASTRAZENECA-2007UW13646

PATIENT
  Age: 43 Year
  Sex: Female
  Weight: 55.3 kg

DRUGS (5)
  1. SEROQUEL [Suspect]
     Indication: ANXIETY
     Route: 048
     Dates: start: 20070301
  2. SEROQUEL [Suspect]
     Indication: DEPRESSION
     Route: 048
     Dates: start: 20070301
  3. NORVASC [Concomitant]
  4. LABETALOL HCL [Concomitant]
  5. XANAX [Concomitant]

REACTIONS (4)
  - ASPIRATION [None]
  - HYPERPHAGIA [None]
  - LUNG INFECTION [None]
  - VOMITING [None]
